FAERS Safety Report 17187037 (Version 1)
Quarter: 2019Q4

REPORT INFORMATION
  Report Type: Spontaneous
  Country: NL (occurrence: NL)
  Receive Date: 20191220
  Receipt Date: 20191220
  Transmission Date: 20200122
  Serious: Yes (Other)
  Sender: FDA-Public Use
  Company Number: NL-JNJFOC-20191221580

PATIENT
  Age: 75 Year
  Sex: Female

DRUGS (2)
  1. RIVAROXABAN [Suspect]
     Active Substance: RIVAROXABAN
     Indication: ATRIAL FIBRILLATION
     Dosage: 20 MG, QD
     Route: 048
     Dates: start: 201603
  2. RIVAROXABAN [Suspect]
     Active Substance: RIVAROXABAN
     Route: 048
     Dates: start: 201901

REACTIONS (1)
  - Glomerular filtration rate decreased [Not Recovered/Not Resolved]

NARRATIVE: CASE EVENT DATE: 201901
